FAERS Safety Report 16898733 (Version 2)
Quarter: 2019Q4

REPORT INFORMATION
  Report Type: Spontaneous
  Country: ES (occurrence: ES)
  Receive Date: 20191009
  Receipt Date: 20191011
  Transmission Date: 20200122
  Serious: No
  Sender: FDA-Public Use
  Company Number: ES-BEH-2019107667

PATIENT
  Sex: Female
  Weight: 70 kg

DRUGS (2)
  1. RHOPHYLAC [Suspect]
     Active Substance: HUMAN RHO(D) IMMUNE GLOBULIN
     Dosage: 300 MICROGRAMS/2 ML
     Route: 030
     Dates: start: 20191001, end: 20191001
  2. RHOPHYLAC [Suspect]
     Active Substance: HUMAN RHO(D) IMMUNE GLOBULIN
     Dosage: 300 MICROGRAMS/2 ML
     Route: 030
     Dates: start: 20191001, end: 20191001

REACTIONS (2)
  - No adverse event [Unknown]
  - Wrong patient received product [Unknown]
